FAERS Safety Report 5352078-9 (Version None)
Quarter: 2007Q2

REPORT INFORMATION
  Report Type: 
  Country: None (occurrence: None)
  Receive Date: 20070607
  Receipt Date: 20070523
  Transmission Date: 20071010
  Serious: Yes (Life-Threatening, Other)
  Sender: FDA-Public Use
  Company Number: 2007P1000162

PATIENT
  Age: 29 Year
  Sex: Male

DRUGS (1)
  1. NICARDIPINE HYDROCHLORIDE (NICARDIPPINE HYDROCHLORIDE) [Suspect]
     Indication: HYPERTENSION
     Dosage: 4ML;QH; IV
     Route: 042
     Dates: start: 20070228, end: 20070306

REACTIONS (3)
  - ABDOMINAL PAIN [None]
  - DISSEMINATED INTRAVASCULAR COAGULATION [None]
  - INFLAMMATORY BOWEL DISEASE [None]
